FAERS Safety Report 5804508-3 (Version None)
Quarter: 2008Q3

REPORT INFORMATION
  Report Type: 
  Country: None (occurrence: None)
  Receive Date: 20080707
  Receipt Date: 20080707
  Transmission Date: 20090109
  Serious: Yes (Other)
  Sender: FDA-Public Use
  Company Number: None

PATIENT
  Age: 18 Year
  Sex: Male
  Weight: 74.6 kg

DRUGS (1)
  1. VALIUM [Suspect]
     Indication: MUSCLE SPASMS
     Dosage: 2MG X1 IV BOLUS
     Route: 040

REACTIONS (1)
  - RASH ERYTHEMATOUS [None]
